FAERS Safety Report 13746101 (Version 1)
Quarter: 2017Q3

REPORT INFORMATION
  Report Type: Spontaneous
  Country: US (occurrence: US)
  Receive Date: 20170712
  Receipt Date: 20170712
  Transmission Date: 20171127
  Serious: Yes (Other)
  Sender: FDA-Public Use
  Company Number: None

PATIENT
  Age: 68 Year
  Sex: Female
  Weight: 99 kg

DRUGS (9)
  1. VITAMIN D [Concomitant]
     Active Substance: CHOLECALCIFEROL
  2. CLARITIN [Concomitant]
     Active Substance: LORATADINE
  3. SYMBICORT [Suspect]
     Active Substance: BUDESONIDE\FORMOTEROL FUMARATE DIHYDRATE
     Indication: PULMONARY CONGESTION
     Dosage: ?          OTHER STRENGTH:MG;?
     Route: 055
     Dates: start: 20160901
  4. VITAMIN E [Concomitant]
     Active Substance: .ALPHA.-TOCOPHEROL
  5. PROAIR INHALER [Suspect]
     Active Substance: ALBUTEROL SULFATE
     Indication: WHEEZING
     Route: 055
     Dates: start: 20160901, end: 20161115
  6. PRILOSEC [Concomitant]
     Active Substance: OMEPRAZOLE MAGNESIUM
  7. IBUPROFEN. [Concomitant]
     Active Substance: IBUPROFEN
  8. SYMBICORT [Suspect]
     Active Substance: BUDESONIDE\FORMOTEROL FUMARATE DIHYDRATE
     Indication: WHEEZING
     Dosage: ?          OTHER STRENGTH:MG;?
     Route: 055
     Dates: start: 20160901
  9. VITAMIN B12 [Concomitant]
     Active Substance: CYANOCOBALAMIN

REACTIONS (17)
  - Myalgia [None]
  - Muscle contusion [None]
  - Dyspnoea [None]
  - Impaired work ability [None]
  - Constipation [None]
  - Gait inability [None]
  - Muscle spasms [None]
  - Fall [None]
  - Joint injury [None]
  - Arthralgia [None]
  - Headache [None]
  - Fatigue [None]
  - Muscle atrophy [None]
  - Limb injury [None]
  - Muscle swelling [None]
  - Chest pain [None]
  - Tremor [None]
